FAERS Safety Report 18495026 (Version 1)
Quarter: 2020Q4

REPORT INFORMATION
  Report Type: Spontaneous
  Country: US (occurrence: US)
  Receive Date: 20201111
  Receipt Date: 20201111
  Transmission Date: 20210114
  Serious: No
  Sender: FDA-Public Use
  Company Number: None

PATIENT
  Age: 71 Year
  Sex: Male
  Weight: 171 kg

DRUGS (2)
  1. FOSFOMYCIN (FOSFOMYCIN TROMETHAMINE 3GM GRANULES SACHET) [Suspect]
     Active Substance: FOSFOMYCIN TROMETHAMINE
     Dosage: ?          OTHER FREQUENCY:OTHER;?
     Route: 048
     Dates: start: 20201015, end: 20201030
  2. LISINOPRIL (LISINOPRIL 2.5MG TAB) [Suspect]
     Active Substance: LISINOPRIL
     Indication: HYPERTENSION
     Route: 048
     Dates: start: 20180101, end: 20201108

REACTIONS (1)
  - Angioedema [None]

NARRATIVE: CASE EVENT DATE: 20201108
